FAERS Safety Report 5409847-6 (Version None)
Quarter: 2007Q3

REPORT INFORMATION
  Report Type: 
  Country: None (occurrence: None)
  Receive Date: 20070807
  Receipt Date: 20070727
  Transmission Date: 20080115
  Serious: Yes (Other)
  Sender: FDA-Public Use
  Company Number: GXKR2007DE06471

PATIENT
  Age: 84 Year
  Sex: Male

DRUGS (2)
  1. IBUPROFEN TABLETS [Suspect]
     Dosage: 600 MG, QD, ORAL
     Route: 048
  2. ACETYLSALICYLIC ACID SRT [Concomitant]

REACTIONS (4)
  - DRUG INEFFECTIVE [None]
  - FALL [None]
  - TRANSIENT ISCHAEMIC ATTACK [None]
  - WEIGHT INCREASED [None]
